FAERS Safety Report 6616015-9 (Version None)
Quarter: 2010Q1

REPORT INFORMATION
  Report Type: 
  Country: None (occurrence: None)
  Receive Date: 20100305
  Receipt Date: 20100224
  Transmission Date: 20100710
  Serious: Yes (Death)
  Sender: FDA-Public Use
  Company Number: B0633498A

PATIENT
  Sex: Female
  Weight: 46.5 kg

DRUGS (2)
  1. LAPATINIB [Suspect]
     Indication: BREAST CANCER METASTATIC
     Dosage: 1250MG PER DAY
     Route: 048
     Dates: start: 20080723, end: 20090419
  2. CAPECITABINE [Suspect]
     Indication: BREAST CANCER METASTATIC
     Dosage: 1150MG TWICE PER DAY
     Route: 048
     Dates: start: 20080723, end: 20090419

REACTIONS (6)
  - DYSPNOEA [None]
  - DYSPNOEA EXERTIONAL [None]
  - FATIGUE [None]
  - HYPOXIA [None]
  - LUNG INFECTION [None]
  - PNEUMONITIS [None]
